FAERS Safety Report 9995975 (Version 2)
Quarter: 2014Q2

REPORT INFORMATION
  Report Type: Spontaneous
  Country: US (occurrence: US)
  Receive Date: 20140311
  Receipt Date: 20140429
  Transmission Date: 20141212
  Serious: Yes (Other)
  Sender: FDA-Public Use
  Company Number: US-BAYER-2014-032304

PATIENT
  Age: 53 Year
  Sex: Male
  Weight: 80.73 kg

DRUGS (5)
  1. BAYER ASPIRIN REGIMEN ADULT LOW STRENGTH [Suspect]
     Indication: ISCHAEMIC HEART DISEASE PROPHYLAXIS
     Dosage: 1 DF, ONCE
     Route: 048
     Dates: start: 198806, end: 198806
  2. BAYER GENUINE ASPIRIN ORIGINAL STRENGTH [Suspect]
     Dosage: UNK
  3. AMLODIPINE [Concomitant]
  4. L-THYROXINE [Concomitant]
  5. SAW PALMETTO [Concomitant]

REACTIONS (3)
  - Dyspnoea [Recovered/Resolved]
  - Wheezing [None]
  - Drug hypersensitivity [None]
